FAERS Safety Report 5135644-5 (Version None)
Quarter: 2006Q4

REPORT INFORMATION
  Report Type: 
  Country: None (occurrence: None)
  Receive Date: 20061026
  Receipt Date: 20061003
  Transmission Date: 20070319
  Serious: Yes (Other)
  Sender: FDA-Public Use
  Company Number: FR-ROCHE-465918

PATIENT
  Age: 66 Year
  Sex: Male

DRUGS (1)
  1. COPEGUS [Suspect]
     Indication: HEPATITIS C
     Route: 065

REACTIONS (1)
  - GLYCOSYLATED HAEMOGLOBIN DECREASED [None]
